FAERS Safety Report 19181201 (Version 1)
Quarter: 2021Q2

REPORT INFORMATION
  Report Type: Spontaneous
  Country: GB (occurrence: GB)
  Receive Date: 20210426
  Receipt Date: 20210426
  Transmission Date: 20210717
  Serious: Yes (Life-Threatening, Hospitalization, Other)
  Sender: FDA-Public Use
  Company Number: GB-SA-2021SA061372

PATIENT
  Age: 58 Year
  Sex: Male

DRUGS (3)
  1. PARACETAMOL [Concomitant]
     Active Substance: ACETAMINOPHEN
     Indication: ILL-DEFINED DISORDER
     Dosage: 1 G, PRN
     Route: 048
  2. LANSOPRAZOLE. [Concomitant]
     Active Substance: LANSOPRAZOLE
     Indication: ILL-DEFINED DISORDER
     Dosage: 30 MG, QD
     Route: 048
  3. ENOXAPARIN SODIUM. [Suspect]
     Active Substance: ENOXAPARIN SODIUM
     Indication: THROMBOSIS PROPHYLAXIS
     Dosage: 40 MG
     Route: 058
     Dates: start: 20200922, end: 20201021

REACTIONS (6)
  - Syncope [Recovered/Resolved]
  - Treatment failure [Unknown]
  - Dyspnoea [Recovered/Resolved]
  - Deep vein thrombosis [Not Recovered/Not Resolved]
  - Joint swelling [Not Recovered/Not Resolved]
  - Embolism [Recovered/Resolved]

NARRATIVE: CASE EVENT DATE: 20201021
